FAERS Safety Report 9753638 (Version 3)
Quarter: 2014Q1

REPORT INFORMATION
  Report Type: Spontaneous
  Country: US (occurrence: None)
  Receive Date: 20131211
  Receipt Date: 20140214
  Transmission Date: 20141002
  Serious: Yes (Hospitalization)
  Sender: FDA-Public Use
  Company Number: 2013AP010196

PATIENT
  Age: 58 Year
  Sex: 0

DRUGS (2)
  1. LAMOTRIGINE [Suspect]
  2. CLONAZEPAM [Suspect]

REACTIONS (4)
  - Renal failure chronic [None]
  - Haemodialysis [None]
  - Hypomania [None]
  - Haemodialysis-induced symptom [None]
